FAERS Safety Report 25989318 (Version 2)
Quarter: 2025Q4

REPORT INFORMATION
  Report Type: Report from Study
  Country: CA (occurrence: CA)
  Receive Date: 20251103
  Receipt Date: 20251121
  Transmission Date: 20260117
  Serious: Yes (Hospitalization, Other)
  Sender: APOTEX
  Company Number: CA-APOTEX-2022AP005917

PATIENT
  Age: 59 Year
  Sex: Male

DRUGS (16)
  1. CEFUROXIME AXETIL [Suspect]
     Active Substance: CEFUROXIME AXETIL
     Indication: Product used for unknown indication
     Route: 065
  2. ASPIRIN [Suspect]
     Active Substance: ASPIRIN
     Indication: Product used for unknown indication
     Dosage: UNK
     Route: 065
  3. IBUPROFEN [Suspect]
     Active Substance: IBUPROFEN
     Indication: Product used for unknown indication
     Dosage: UNK
     Route: 065
  4. AMOXICILLIN [Suspect]
     Active Substance: AMOXICILLIN
     Indication: Product used for unknown indication
     Dosage: UNK
     Route: 065
  5. AMOXICILLIN [Suspect]
     Active Substance: AMOXICILLIN
     Dosage: UNK
     Route: 065
  6. OMALIZUMAB [Suspect]
     Active Substance: OMALIZUMAB
     Indication: Asthma
     Dosage: 300 MILLIGRAM
  7. OMALIZUMAB [Suspect]
     Active Substance: OMALIZUMAB
     Indication: Nasal polyps
     Dosage: UNK
  8. OMALIZUMAB [Suspect]
     Active Substance: OMALIZUMAB
     Indication: Chronic rhinosinusitis with nasal polyps
     Dosage: 1 EVERY 1 MONTHS
  9. OMALIZUMAB [Suspect]
     Active Substance: OMALIZUMAB
     Indication: Asthma
     Dosage: UNK
  10. OMALIZUMAB [Suspect]
     Active Substance: OMALIZUMAB
     Dosage: 300 MILLIGRAM, Q.M.T.
  11. OMALIZUMAB [Suspect]
     Active Substance: OMALIZUMAB
     Dosage: 300 MILLIGRAM
  12. PNEUMOCOCCAL VACCINE POLYVALENT NOS [Suspect]
     Active Substance: PNEUMOCOCCAL VACCINE, POLYVALENT
     Indication: Product used for unknown indication
     Route: 065
  13. BUDESONIDE\FORMOTEROL FUMARATE [Concomitant]
     Active Substance: BUDESONIDE\FORMOTEROL FUMARATE
     Indication: Asthma
     Dosage: 2 DOSAGE FORM, BID
  14. PULMICORT TURBUHALER [Concomitant]
     Active Substance: BUDESONIDE
     Indication: Product used for unknown indication
     Dosage: 1 DOSAGE FORM, BID
  15. PANTOPRAZOLE SODIUM [Concomitant]
     Active Substance: PANTOPRAZOLE SODIUM
     Indication: Product used for unknown indication
     Route: 065
  16. ROSUVASTATIN CALCIUM [Concomitant]
     Active Substance: ROSUVASTATIN CALCIUM
     Indication: Product used for unknown indication

REACTIONS (41)
  - General physical health deterioration [Recovered/Resolved]
  - Arthralgia [Recovered/Resolved]
  - Cough [Recovered/Resolved]
  - Discomfort [Recovered/Resolved]
  - Ear infection [Recovered/Resolved]
  - Ear pain [Recovered/Resolved]
  - Erythema [Recovered/Resolved]
  - Fatigue [Recovered/Resolved]
  - Headache [Recovered/Resolved]
  - Hernia [Recovered/Resolved]
  - Influenza [Recovered/Resolved]
  - Intervertebral disc protrusion [Recovered/Resolved]
  - Middle ear effusion [Recovered/Resolved]
  - Movement disorder [Recovered/Resolved]
  - Musculoskeletal pain [Recovered/Resolved]
  - Myalgia [Recovered/Resolved]
  - Myositis [Recovered/Resolved]
  - Nasal discharge discolouration [Recovered/Resolved]
  - Nasal polyps [Recovered/Resolved]
  - Oropharyngeal pain [Recovered/Resolved]
  - Sleep deficit [Recovered/Resolved]
  - Pyrexia [Recovered/Resolved]
  - Rhinorrhoea [Recovered/Resolved]
  - Frustration tolerance decreased [Recovered/Resolved]
  - Sinusitis [Recovered/Resolved]
  - Hyposmia [Recovered/Resolved]
  - Hypogeusia [Recovered/Resolved]
  - Pain [Recovered/Resolved]
  - Subdural haemorrhage [Recovered/Resolved]
  - Restlessness [Recovered/Resolved]
  - Irritability [Recovered/Resolved]
  - Upper-airway cough syndrome [Recovered/Resolved]
  - Sleep inertia [Recovered/Resolved]
  - Peripheral swelling [Recovered/Resolved]
  - Hypoacusis [Recovered/Resolved]
  - Diarrhoea [Recovered/Resolved]
  - Pruritus [Recovered/Resolved]
  - Drug hypersensitivity [Recovered/Resolved]
  - Nasal congestion [Recovered/Resolved]
  - Tinnitus [Recovered/Resolved]
  - Drug ineffective [Recovered/Resolved]
